FAERS Safety Report 4945369-4 (Version None)
Quarter: 2006Q1

REPORT INFORMATION
  Report Type: 
  Country: None (occurrence: None)
  Receive Date: 20060316
  Receipt Date: 20060316
  Transmission Date: 20060701
  Serious: Yes (Hospitalization, Other)
  Sender: FDA-Public Use
  Company Number: None

PATIENT
  Sex: Male
  Weight: 82.6 kg

DRUGS (1)
  1. CISPLATIN [Suspect]
     Indication: LARYNGEAL CANCER
     Dosage: 190 MG
     Dates: start: 20060228

REACTIONS (7)
  - ABDOMINAL PAIN [None]
  - CONSTIPATION [None]
  - DEHYDRATION [None]
  - FAECALOMA [None]
  - MALNUTRITION [None]
  - NAUSEA [None]
  - VOMITING [None]
